FAERS Safety Report 24061422 (Version 2)
Quarter: 2024Q3

REPORT INFORMATION
  Report Type: Spontaneous
  Country: US (occurrence: US)
  Receive Date: 20240708
  Receipt Date: 20240722
  Transmission Date: 20241016
  Serious: Yes (Death, Life-Threatening, Hospitalization)
  Sender: TEVA
  Company Number: US-TEVA-VS-3214523

PATIENT
  Age: 52 Year
  Sex: Male

DRUGS (6)
  1. PREDNISONE [Suspect]
     Active Substance: PREDNISONE
     Indication: Immunosuppressant drug therapy
     Route: 065
  2. VALGANCICLOVIR [Suspect]
     Active Substance: VALGANCICLOVIR
     Indication: Cytomegalovirus viraemia
     Route: 042
  3. DEXAMETHASONE [Suspect]
     Active Substance: DEXAMETHASONE
     Indication: Haemophagocytic lymphohistiocytosis
     Dosage: HIGH DOSE
     Route: 065
  4. TACROLIMUS [Suspect]
     Active Substance: TACROLIMUS
     Indication: Immunosuppressant drug therapy
     Route: 065
  5. ANAKINRA [Suspect]
     Active Substance: ANAKINRA
     Indication: Haemophagocytic lymphohistiocytosis
     Route: 065
  6. MYCOPHENOLIC ACID [Suspect]
     Active Substance: MYCOPHENOLIC ACID
     Indication: Immunosuppressant drug therapy
     Route: 065

REACTIONS (10)
  - Tuberculosis [Unknown]
  - Haemophagocytic lymphohistiocytosis [Fatal]
  - Multiple organ dysfunction syndrome [Fatal]
  - Hypervolaemia [Unknown]
  - Acute kidney injury [Unknown]
  - Drug ineffective [Fatal]
  - Acidosis [Unknown]
  - Acute respiratory distress syndrome [Unknown]
  - Encephalopathy [Unknown]
  - Lymphadenopathy mediastinal [Unknown]
